FAERS Safety Report 9871323 (Version 2)
Quarter: 2014Q1

REPORT INFORMATION
  Report Type: Spontaneous
  Country: JP (occurrence: JP)
  Receive Date: 20140205
  Receipt Date: 20140221
  Transmission Date: 20141002
  Serious: Yes (Hospitalization, Other)
  Sender: FDA-Public Use
  Company Number: JP-ASTRAZENECA-2014SE07663

PATIENT
  Age: 26 Year
  Sex: Female

DRUGS (7)
  1. QUETIAPINE FUMARATE [Suspect]
     Dosage: 1550 MG
     Route: 048
  2. ARIPIPRAZOLE [Suspect]
     Dosage: 60 MG
     Route: 048
  3. SODIUM VALPROATE [Suspect]
     Dosage: 2000 MG
     Route: 048
  4. LEVOMEPROMAZINE MALEATE [Suspect]
     Dosage: 20 MG
     Route: 048
  5. LORAZEPAM [Suspect]
     Dosage: 0.5 MG
     Route: 048
  6. MIDODRINE HYDROCHLORIDE [Suspect]
     Dosage: 20 MG
     Route: 048
  7. CONTRACEPTIVES [Concomitant]

REACTIONS (3)
  - Overdose [Unknown]
  - Rhabdomyolysis [Unknown]
  - Altered state of consciousness [Unknown]
